FAERS Safety Report 12203777 (Version 1)
Quarter: 2016Q1

REPORT INFORMATION
  Report Type: Report from Study
  Country: GR (occurrence: GR)
  Receive Date: 20160323
  Receipt Date: 20160323
  Transmission Date: 20160526
  Serious: Yes (Other)
  Sender: FDA-Public Use
  Company Number: PHHY2016GR037825

PATIENT
  Age: 68 Year
  Sex: Female

DRUGS (1)
  1. NEORAL [Suspect]
     Active Substance: CYCLOSPORINE
     Indication: PSORIASIS
     Dosage: 100 MG/KG, UNK (INTERMITTENT SCHEDULE)
     Route: 048

REACTIONS (4)
  - Gastric haemorrhage [Unknown]
  - Atrial fibrillation [Unknown]
  - Intentional overdose [Unknown]
  - Drug ineffective [Unknown]
